FAERS Safety Report 10077917 (Version 1)
Quarter: 2014Q2

REPORT INFORMATION
  Report Type: Report from Study
  Country: GB (occurrence: GB)
  Receive Date: 20140415
  Receipt Date: 20140415
  Transmission Date: 20141212
  Serious: Yes (Hospitalization)
  Sender: FDA-Public Use
  Company Number: GB-AMGEN INC.-GBRCT2014026704

PATIENT
  Age: 50 Year
  Sex: Male

DRUGS (4)
  1. ETANERCEPT [Suspect]
     Indication: PSORIATIC ARTHROPATHY
     Dosage: 50 MG, QWK
     Route: 065
     Dates: start: 20110420
  2. FOLIC ACID [Concomitant]
     Dosage: UNK
     Dates: start: 19981010
  3. VOLTAROL                           /00372302/ [Concomitant]
     Dosage: UNK
     Dates: start: 19960701
  4. METHOTREXATE [Concomitant]
     Dosage: UNK
     Dates: start: 20131121

REACTIONS (1)
  - Anal ulcer [Recovered/Resolved]
